FAERS Safety Report 8052280-1 (Version None)
Quarter: 2012Q1

REPORT INFORMATION
  Report Type: 
  Country: None (occurrence: None)
  Receive Date: 20120118
  Receipt Date: 20120109
  Transmission Date: 20120608
  Serious: Yes (Hospitalization)
  Sender: FDA-Public Use
  Company Number: US-UCBSA-049391

PATIENT
  Age: 14 Year
  Sex: Female
  Weight: 49 kg

DRUGS (9)
  1. LACOSAMIDE [Suspect]
     Indication: PARTIAL SEIZURES
     Dosage: 24 M/S
     Route: 048
     Dates: start: 20111020
  2. TRILEPTAL [Concomitant]
     Indication: EPILEPSY
     Route: 048
     Dates: start: 20110201
  3. KEPPRA [Concomitant]
     Indication: EPILEPSY
     Route: 048
     Dates: start: 20110629
  4. ENALAPRIL MALEATE [Concomitant]
     Indication: HYPERTENSION
     Route: 048
     Dates: start: 20111019
  5. NEURONTIN [Concomitant]
     Indication: NEURALGIA
     Route: 048
     Dates: start: 20110909
  6. PRILOSEC [Concomitant]
     Route: 048
  7. CARAFATE [Concomitant]
     Indication: ABDOMINAL PAIN
     Route: 048
     Dates: start: 20110901
  8. LACOSAMIDE [Suspect]
     Dosage: 19   M/S
     Route: 048
     Dates: start: 20110727, end: 20111019
  9. ELAVIL [Concomitant]
     Indication: HEADACHE
     Route: 048
     Dates: start: 20110824

REACTIONS (1)
  - CONVULSION [None]
